FAERS Safety Report 5630235-1 (Version None)
Quarter: 2008Q1

REPORT INFORMATION
  Report Type: 
  Country: None (occurrence: None)
  Receive Date: 20080219
  Receipt Date: 20080212
  Transmission Date: 20080703
  Serious: Yes (Other)
  Sender: FDA-Public Use
  Company Number: PHRM2008FR00826

PATIENT
  Age: 39 Year
  Sex: Male

DRUGS (3)
  1. TEGRETOL [Suspect]
     Indication: EPILEPSY
     Dosage: 500 MG, BID
     Route: 048
     Dates: start: 20010101
  2. DEPAKENE [Suspect]
     Indication: EPILEPSY
     Route: 048
  3. KEPPRA [Suspect]
     Indication: EPILEPSY
     Route: 048
     Dates: start: 20030601

REACTIONS (4)
  - BIOPSY SKIN [None]
  - LYMPHOCYTIC INFILTRATION [None]
  - PSEUDOLYMPHOMA [None]
  - SKIN LESION [None]
